FAERS Safety Report 13731529 (Version 1)
Quarter: 2017Q3

REPORT INFORMATION
  Report Type: Spontaneous
  Country: ES (occurrence: ES)
  Receive Date: 20170707
  Receipt Date: 20170707
  Transmission Date: 20171127
  Serious: Yes (Hospitalization)
  Sender: FDA-Public Use
  Company Number: ES-009507513-1706ESP011535

PATIENT
  Age: 68 Year
  Sex: Male

DRUGS (5)
  1. CROMATONBIC FERRO (FERROUS LACTATE) [Suspect]
     Active Substance: FERROUS LACTATE
     Dosage: UNK
     Route: 030
     Dates: start: 201607
  2. CARBIDOPA (+) LEVODOPA [Suspect]
     Active Substance: CARBIDOPA\LEVODOPA
     Indication: PARKINSON^S DISEASE
     Dosage: UNK
     Route: 065
     Dates: start: 20160119
  3. SINEMET PLUS 25/100 MG COMPRIMIDOS [Suspect]
     Active Substance: CARBIDOPA\LEVODOPA
     Indication: PARKINSON^S DISEASE
     Dosage: UNK
     Route: 048
     Dates: start: 2008
  4. HIDROXIL B12 B6 B1 [Concomitant]
     Active Substance: HYDROXOCOBALAMIN\PYRIDOXINE HYDROCHLORIDE\THIAMINE HYDROCHLORIDE
     Dosage: UNK
     Route: 048
     Dates: start: 2017
  5. SILODYX [Suspect]
     Active Substance: SILODOSIN
     Dosage: UNK
     Route: 048
     Dates: start: 2016

REACTIONS (2)
  - Neuropathy vitamin B6 deficiency [Not Recovered/Not Resolved]
  - Peripheral sensory neuropathy [Not Recovered/Not Resolved]

NARRATIVE: CASE EVENT DATE: 201704
